FAERS Safety Report 5379966-1 (Version None)
Quarter: 2007Q3

REPORT INFORMATION
  Report Type: 
  Country: None (occurrence: None)
  Receive Date: 20070706
  Receipt Date: 20070627
  Transmission Date: 20080115
  Serious: Yes (Other)
  Sender: FDA-Public Use
  Company Number: US-JNJFOC-20070606794

PATIENT
  Sex: Female
  Weight: 104.33 kg

DRUGS (6)
  1. FENTANYL TRANSDERMAL SYSTEM [Suspect]
     Route: 062
  2. FENTANYL TRANSDERMAL SYSTEM [Suspect]
     Route: 062
  3. FENTANYL TRANSDERMAL SYSTEM [Suspect]
     Indication: PAIN
     Route: 062
  4. ATIVAN [Concomitant]
     Indication: ANXIETY
     Route: 048
  5. PLAVIX [Concomitant]
     Indication: ANTICOAGULANT THERAPY
     Route: 048
  6. FENTORA [Concomitant]
     Indication: BREAKTHROUGH PAIN
     Dosage: 1OR 2 TABLETS AS NEEDED, DAILY
     Route: 002

REACTIONS (2)
  - NAUSEA [None]
  - TRANSIENT ISCHAEMIC ATTACK [None]
